FAERS Safety Report 9003607 (Version 1)
Quarter: 2013Q1

REPORT INFORMATION
  Report Type: Spontaneous
  Country: FR (occurrence: FR)
  Receive Date: 20130108
  Receipt Date: 20130108
  Transmission Date: 20140127
  Serious: Yes (Hospitalization)
  Sender: FDA-Public Use
  Company Number: FR-PFIZER INC-2013001876

PATIENT
  Age: 29 Year
  Sex: Male

DRUGS (4)
  1. TAHOR [Suspect]
     Dosage: 40 MG/DAY
     Route: 048
     Dates: end: 20121105
  2. BRISTOPEN [Suspect]
     Dosage: 4 G, 4X/DAY
     Dates: start: 20120920, end: 20121108
  3. TAVANIC [Suspect]
     Dosage: 750 MG/DAY
     Dates: start: 20120914
  4. CALCIPARINE [Concomitant]
     Dosage: 0.3 UNK, 3X/DAY
     Dates: start: 20120921

REACTIONS (2)
  - Hepatitis [Not Recovered/Not Resolved]
  - Eosinophilia [Not Recovered/Not Resolved]
